FAERS Safety Report 9839358 (Version 3)
Quarter: 2014Q2

REPORT INFORMATION
  Report Type: Report from Study
  Country: FR (occurrence: FR)
  Receive Date: 20140123
  Receipt Date: 20140410
  Transmission Date: 20141212
  Serious: Yes (Other)
  Sender: FDA-Public Use
  Company Number: FR-BRISTOL-MYERS SQUIBB COMPANY-19888403

PATIENT
  Age: 54 Year
  Sex: Female
  Weight: 98 kg

DRUGS (5)
  1. ONGLYZA TABS 5 MG [Suspect]
     Indication: TYPE 2 DIABETES MELLITUS
     Route: 048
     Dates: start: 20120724, end: 20130730
  2. METFORMINE [Concomitant]
     Dosage: ^850^ 3 TAB PER DAY,?AND ALSO 700 MG, THREE TIMES DAILY SINCE 29MAY12
     Dates: start: 2003
  3. TAHOR [Concomitant]
     Dosage: TABS
     Route: 048
  4. COVERSYL [Concomitant]
     Dosage: TABS
     Route: 048
  5. TEMERIT [Concomitant]
     Route: 048

REACTIONS (3)
  - Lipase increased [Unknown]
  - Transaminases increased [Unknown]
  - Hepatic failure [Recovered/Resolved]
